FAERS Safety Report 7401564-6 (Version None)
Quarter: 2011Q2

REPORT INFORMATION
  Report Type: 
  Country: None (occurrence: None)
  Receive Date: 20110408
  Receipt Date: 20110329
  Transmission Date: 20111010
  Serious: Yes (Hospitalization)
  Sender: FDA-Public Use
  Company Number: US-BIOGENIDEC-2010BI043823

PATIENT
  Age: 65 Year
  Sex: Female

DRUGS (2)
  1. AVONEX [Suspect]
     Indication: MULTIPLE SCLEROSIS
     Route: 030
     Dates: start: 20040601, end: 20101025
  2. AVONEX [Suspect]
     Route: 030
     Dates: start: 20110315

REACTIONS (2)
  - LARGE INTESTINAL OBSTRUCTION [None]
  - DIVERTICULITIS [None]
